FAERS Safety Report 10945728 (Version 1)
Quarter: 2015Q1

REPORT INFORMATION
  Report Type: Spontaneous
  Country: GR (occurrence: None)
  Receive Date: 20150319
  Receipt Date: 20150319
  Transmission Date: 20150721
  Serious: Yes (Hospitalization)
  Sender: FDA-Public Use
  Company Number: GR-ZYDUS-005191

PATIENT
  Age: 76 Year
  Sex: Male

DRUGS (3)
  1. TICLOPIDINE [Suspect]
     Active Substance: TICLOPIDINE
     Route: 048
  2. ASPIRIN. [Concomitant]
     Active Substance: ASPIRIN
  3. CLOPIDOGREL(CLOPIDOGREL) [Suspect]
     Active Substance: CLOPIDOGREL BISULFATE
     Indication: CORONARY ARTERIAL STENT INSERTION
     Route: 048

REACTIONS (6)
  - Rash pruritic [None]
  - Exfoliative rash [None]
  - Dermatitis exfoliative [None]
  - Malaise [None]
  - Chills [None]
  - Drug hypersensitivity [None]
